FAERS Safety Report 7415209-2 (Version None)
Quarter: 2011Q2

REPORT INFORMATION
  Report Type: 
  Country: None (occurrence: None)
  Receive Date: 20110414
  Receipt Date: 20110408
  Transmission Date: 20111010
  Serious: Yes (Other)
  Sender: FDA-Public Use
  Company Number: PHHY2011US28930

PATIENT
  Sex: Female

DRUGS (4)
  1. CLONAZEPAM [Concomitant]
  2. CARAFATE [Concomitant]
  3. DILANTIN [Concomitant]
  4. AFINITOR [Suspect]
     Indication: ASTROCYTOMA
     Dosage: 5 MG, QD
     Route: 048
     Dates: start: 20110312, end: 20110406

REACTIONS (5)
  - ARTHRALGIA [None]
  - AGGRESSION [None]
  - NEGATIVE THOUGHTS [None]
  - SUICIDAL IDEATION [None]
  - FALL [None]
